FAERS Safety Report 4500341-3 (Version None)
Quarter: 2004Q3

REPORT INFORMATION
  Report Type: 
  Country: None (occurrence: None)
  Receive Date: 20040927
  Receipt Date: 20040713
  Transmission Date: 20050211
  Serious: No
  Sender: FDA-Public Use
  Company Number: USA040772539

PATIENT
  Age: 10 Year
  Sex: Male
  Weight: 36 kg

DRUGS (2)
  1. STRATTERA [Suspect]
     Indication: COMMUNICATION DISORDER
     Dosage: 36 MG DAY
     Dates: start: 20040401
  2. ZYRTEC [Concomitant]

REACTIONS (3)
  - FATIGUE [None]
  - MEDICATION ERROR [None]
  - NAUSEA [None]
